FAERS Safety Report 6375326-5 (Version None)
Quarter: 2009Q3

REPORT INFORMATION
  Report Type: 
  Country: None (occurrence: None)
  Receive Date: 20090924
  Receipt Date: 20090917
  Transmission Date: 20100115
  Serious: Yes (Other)
  Sender: FDA-Public Use
  Company Number: B0593751A

PATIENT
  Age: 77 Year
  Sex: Male

DRUGS (2)
  1. SEREVENT [Suspect]
     Indication: DRUG USE FOR UNKNOWN INDICATION
     Route: 055
     Dates: start: 20090707
  2. SEREVENT [Suspect]
     Dosage: 50MCG TWICE PER DAY
     Route: 055

REACTIONS (1)
  - VISUAL ACUITY REDUCED [None]
